FAERS Safety Report 5195240-0 (Version None)
Quarter: 2006Q4

REPORT INFORMATION
  Report Type: 
  Country: None (occurrence: None)
  Receive Date: 20061229
  Receipt Date: 20061102
  Transmission Date: 20070319
  Serious: Yes (Death, Hospitalization)
  Sender: FDA-Public Use
  Company Number: JP-PFIZER INC-2006136308

PATIENT
  Sex: Male

DRUGS (8)
  1. LIPITOR [Suspect]
     Indication: HYPERLIPIDAEMIA
     Dosage: DAILY DOSE:10MG
     Route: 048
     Dates: start: 20060930, end: 20061026
  2. GASTER [Suspect]
     Indication: GASTROINTESTINAL HAEMORRHAGE
     Dosage: DAILY DOSE:40MG
     Route: 048
     Dates: start: 20061003, end: 20061026
  3. ASPIRIN [Suspect]
     Indication: CORONARY ARTERIAL STENT INSERTION
     Dosage: DAILY DOSE:200MG
     Route: 048
     Dates: start: 20060927, end: 20061025
  4. RENIVACE [Suspect]
     Indication: HYPERTENSION
     Dosage: DAILY DOSE:2.5MG
     Route: 048
     Dates: start: 20060927, end: 20061025
  5. PLAVIX [Suspect]
     Indication: CORONARY ARTERIAL STENT INSERTION
     Dosage: DAILY DOSE:75MG
     Route: 048
     Dates: start: 20060927, end: 20061028
  6. SIGMART [Concomitant]
     Indication: MYOCARDIAL ISCHAEMIA
     Dosage: DAILY DOSE:15MG
     Route: 048
  7. TORSEMIDE [Concomitant]
     Indication: CARDIAC FAILURE CONGESTIVE
     Dosage: DAILY DOSE:4MG
     Route: 048
     Dates: start: 20061004
  8. ARTIST [Concomitant]
     Indication: CARDIAC FAILURE CONGESTIVE
     Dosage: DAILY DOSE:2.5MG
     Route: 048
     Dates: start: 20061003

REACTIONS (2)
  - MYOCARDIAL INFARCTION [None]
  - STEVENS-JOHNSON SYNDROME [None]
